FAERS Safety Report 7576138-7 (Version None)
Quarter: 2011Q2

REPORT INFORMATION
  Report Type: 
  Country: None (occurrence: None)
  Receive Date: 20110623
  Receipt Date: 20110623
  Transmission Date: 20111010
  Serious: Yes (Life-Threatening, Hospitalization)
  Sender: FDA-Public Use
  Company Number: None

PATIENT
  Sex: Female
  Weight: 126 kg

DRUGS (1)
  1. BENZ-O-STHTIC SPRAY BENZOCAINE 20% GERITREX [Suspect]
     Indication: OROPHARYNGEAL PAIN
     Dosage: ONCE ORPHARINGEAL
     Route: 049
     Dates: start: 20110319, end: 20110319

REACTIONS (2)
  - DYSPNOEA [None]
  - WHEEZING [None]
